FAERS Safety Report 9627212 (Version 1)
Quarter: 2013Q4

REPORT INFORMATION
  Report Type: Not Available
  Country: US (occurrence: US)
  Receive Date: 20131016
  Receipt Date: 20131016
  Transmission Date: 20140711
  Serious: Yes (Other)
  Sender: FDA-Public Use
  Company Number: US-LUNDBECK-DKLU1084129

PATIENT
  Age: 13 Year
  Sex: Male

DRUGS (6)
  1. SABRIL (TABLET) [Suspect]
     Indication: INFANTILE SPASMS
     Route: 048
     Dates: start: 20111205
  2. SABRIL (TABLET) [Suspect]
     Route: 048
     Dates: start: 20120810
  3. SABRIL (TABLET) [Suspect]
     Route: 048
     Dates: start: 20120817
  4. SABRIL (TABLET) [Suspect]
     Route: 048
     Dates: start: 20120817
  5. VIMPAT [Concomitant]
     Indication: PRODUCT USED FOR UNKNOWN INDICATION
  6. FELBATOL [Concomitant]
     Indication: PRODUCT USED FOR UNKNOWN INDICATION

REACTIONS (1)
  - Convulsion [Not Recovered/Not Resolved]
